FAERS Safety Report 12272828 (Version 1)
Quarter: 2016Q2

REPORT INFORMATION
  Report Type: Spontaneous
  Country: US (occurrence: US)
  Receive Date: 20160415
  Receipt Date: 20160415
  Transmission Date: 20160815
  Serious: No
  Sender: FDA-Public Use
  Company Number: US-B.I. PHARMACEUTICALS,INC./RIDGEFIELD-2016-BI-19750BP

PATIENT
  Age: 54 Year
  Sex: Male
  Weight: 91 kg

DRUGS (10)
  1. ATROVENT [Suspect]
     Active Substance: IPRATROPIUM BROMIDE
     Indication: ASTHMA
     Dosage: FORMULATION: INHALATION AEROSOL; DOSE PER APPLICATION: 17 MCG
     Route: 055
     Dates: start: 2011
  2. OMEPRAZOLE. [Concomitant]
     Active Substance: OMEPRAZOLE
     Indication: GASTROINTESTINAL DISORDER
     Dosage: 40 MG
     Route: 048
  3. COMBIVENT [Suspect]
     Active Substance: ALBUTEROL SULFATE\IPRATROPIUM BROMIDE
     Indication: ASPIRIN-EXACERBATED RESPIRATORY DISEASE
     Dosage: DOSE PER APPLICATION: 20 MCG / 100 MCG
     Route: 055
     Dates: start: 2004
  4. IPRATROPIUM BROMIDE. [Concomitant]
     Active Substance: IPRATROPIUM BROMIDE
     Indication: ASPIRIN-EXACERBATED RESPIRATORY DISEASE
     Dosage: FORMULATION: NEBULIZER
     Route: 065
  5. VITAMIN D [Concomitant]
     Active Substance: CHOLECALCIFEROL
     Indication: PRODUCT USED FOR UNKNOWN INDICATION
     Dosage: 0.1429 ANZ
     Route: 048
  6. COMBIVENT [Suspect]
     Active Substance: ALBUTEROL SULFATE\IPRATROPIUM BROMIDE
     Indication: ASPIRIN-EXACERBATED RESPIRATORY DISEASE
     Dosage: FORMULATION: INHALATION AEROSOL; DOSE PER APPLICATION: 18 MCG / 103 MCG
     Route: 055
     Dates: start: 2004
  7. PREDNISONE. [Concomitant]
     Active Substance: PREDNISONE
     Indication: ASPIRIN-EXACERBATED RESPIRATORY DISEASE
     Dosage: DOSE PER APPLICATION: 20MG
     Route: 048
  8. PULMICORT TURBUHALER [Concomitant]
     Active Substance: BUDESONIDE
     Indication: ASPIRIN-EXACERBATED RESPIRATORY DISEASE
     Dosage: FORMULATION: RESPULES
     Route: 045
  9. PATADAY [Concomitant]
     Active Substance: OLOPATADINE HYDROCHLORIDE
     Indication: PRODUCT USED FOR UNKNOWN INDICATION
     Route: 065
  10. FLONASE [Concomitant]
     Active Substance: FLUTICASONE PROPIONATE
     Indication: ASPIRIN-EXACERBATED RESPIRATORY DISEASE
     Dosage: DOSE PER APPLICATION: 50MG
     Route: 065

REACTIONS (1)
  - Dyspnoea [Not Recovered/Not Resolved]

NARRATIVE: CASE EVENT DATE: 201603
